FAERS Safety Report 17842199 (Version 1)
Quarter: 2020Q2

REPORT INFORMATION
  Report Type: Other
  Country: US (occurrence: US)
  Receive Date: 20200529
  Receipt Date: 20200529
  Transmission Date: 20200714
  Serious: Yes (Life-Threatening, Hospitalization)
  Sender: FDA-Public Use
  Company Number: US-US-PROVELL PHARMACEUTICALS LLC-9164689

PATIENT
  Age: 32 Year
  Sex: Male

DRUGS (2)
  1. DINITROPHENOL [Suspect]
     Active Substance: 2,4-DINITROPHENOL
     Indication: WEIGHT DECREASED
  2. LEVOTHYROXINE. [Suspect]
     Active Substance: LEVOTHYROXINE
     Indication: WEIGHT DECREASED

REACTIONS (3)
  - Cardiac failure acute [Unknown]
  - Hyperthermia [Recovered/Resolved]
  - Off label use [Recovered/Resolved]
